FAERS Safety Report 15223914 (Version 1)
Quarter: 2018Q3

REPORT INFORMATION
  Report Type: Spontaneous
  Country: US (occurrence: US)
  Receive Date: 20180731
  Receipt Date: 20180731
  Transmission Date: 20181010
  Serious: No
  Sender: FDA-Public Use
  Company Number: US-009507513-1807USA013255

PATIENT
  Age: 47 Year
  Sex: Male

DRUGS (4)
  1. SINGULAIR [Suspect]
     Active Substance: MONTELUKAST SODIUM
     Indication: MAST CELL ACTIVATION SYNDROME
     Dosage: UNK
     Route: 048
  2. ASPIRIN. [Concomitant]
     Active Substance: ASPIRIN
     Indication: MAST CELL ACTIVATION SYNDROME
     Dosage: 325 MG, UNK
  3. FAMOTIDINE. [Concomitant]
     Active Substance: FAMOTIDINE
     Indication: MAST CELL ACTIVATION SYNDROME
     Dosage: 20 MG/D
  4. CETIRIZINE HYDROCHLORIDE. [Concomitant]
     Active Substance: CETIRIZINE HYDROCHLORIDE
     Indication: MAST CELL ACTIVATION SYNDROME
     Dosage: 10 MG/D

REACTIONS (1)
  - Product use in unapproved indication [Unknown]
